FAERS Safety Report 6081383-6 (Version None)
Quarter: 2009Q1

REPORT INFORMATION
  Report Type: 
  Country: None (occurrence: None)
  Receive Date: 20090218
  Receipt Date: 20090209
  Transmission Date: 20090719
  Serious: Yes (Other)
  Sender: FDA-Public Use
  Company Number: US-CELGENEUS-163-21880-09020627

PATIENT

DRUGS (2)
  1. REVLIMID [Suspect]
     Route: 048
  2. THALIDOMIDE [Suspect]
     Route: 048

REACTIONS (4)
  - ASTHENIA [None]
  - DEPRESSION [None]
  - NEUROPATHY PERIPHERAL [None]
  - PARKINSONISM [None]
